FAERS Safety Report 13650460 (Version 1)
Quarter: 2017Q2

REPORT INFORMATION
  Report Type: Spontaneous
  Country: US (occurrence: US)
  Receive Date: 20170614
  Receipt Date: 20170614
  Transmission Date: 20170830
  Serious: Yes (Life-Threatening)
  Sender: FDA-Public Use
  Company Number: None

PATIENT
  Age: 57 Year
  Sex: Female
  Weight: 63.56 kg

DRUGS (7)
  1. PREDNISONE. [Concomitant]
     Active Substance: PREDNISONE
  2. BENZONATATE. [Concomitant]
     Active Substance: BENZONATATE
  3. DOXY-CYCLINE HYC. 100MG CAP [Concomitant]
     Active Substance: DOXYCYCLINE HYCLATE
  4. BACITRACIN ZINC\NEOMYCIN SULFATE\POLYMYXIN B SULFATE\PRAMOXINE HYDROCHLORIDE [Suspect]
     Active Substance: BACITRACIN ZINC\NEOMYCIN SULFATE\POLYMYXIN B SULFATE\PRAMOXINE HYDROCHLORIDE
     Indication: SCAB
     Route: 061
     Dates: start: 20170527, end: 20170527
  5. PROAIR HFA [Concomitant]
     Active Substance: ALBUTEROL SULFATE
  6. BACITRACIN ZINC\NEOMYCIN SULFATE\POLYMYXIN B SULFATE\PRAMOXINE HYDROCHLORIDE [Suspect]
     Active Substance: BACITRACIN ZINC\NEOMYCIN SULFATE\POLYMYXIN B SULFATE\PRAMOXINE HYDROCHLORIDE
     Indication: INFECTION PROPHYLAXIS
     Route: 061
     Dates: start: 20170527, end: 20170527
  7. TYLENOL [Concomitant]
     Active Substance: ACETAMINOPHEN

REACTIONS (4)
  - Bronchitis [None]
  - Hypersensitivity [None]
  - Immunodeficiency [None]
  - Cellulitis [None]

NARRATIVE: CASE EVENT DATE: 20170527
